FAERS Safety Report 8243542-3 (Version None)
Quarter: 2012Q1

REPORT INFORMATION
  Report Type: 
  Country: None (occurrence: None)
  Receive Date: 20120329
  Receipt Date: 20120320
  Transmission Date: 20120608
  Serious: Yes (Hospitalization)
  Sender: FDA-Public Use
  Company Number: PHHY2012CA025114

PATIENT
  Sex: Female

DRUGS (1)
  1. EXJADE [Suspect]
     Indication: MYELODYSPLASTIC SYNDROME
     Dates: start: 20110622

REACTIONS (5)
  - GAIT DISTURBANCE [None]
  - HAEMOGLOBIN DECREASED [None]
  - MALAISE [None]
  - HAEMORRHAGE [None]
  - ASTHENIA [None]
